FAERS Safety Report 6615109-1 (Version None)
Quarter: 2010Q1

REPORT INFORMATION
  Report Type: 
  Country: None (occurrence: None)
  Receive Date: 20100305
  Receipt Date: 20100226
  Transmission Date: 20100710
  Serious: Yes (Other)
  Sender: FDA-Public Use
  Company Number: GB-ASTRAZENECA-2010SE08546

PATIENT
  Age: 43 Year
  Sex: Female

DRUGS (5)
  1. QUETIAPINE [Suspect]
     Indication: DELUSION
     Route: 048
     Dates: start: 20091001, end: 20091022
  2. ABILIFY [Concomitant]
     Indication: DELUSION
     Route: 048
     Dates: end: 20091001
  3. LANSOPRAZOLE [Concomitant]
     Indication: GASTRIC DISORDER
     Route: 048
  4. TRAMADOL HCL [Concomitant]
     Indication: PAIN
     Route: 048
  5. VENLAFAXINE [Concomitant]
     Indication: DEPRESSION
     Route: 048

REACTIONS (4)
  - AGGRESSION [None]
  - DISINHIBITION [None]
  - LIBIDO INCREASED [None]
  - MANIA [None]
